FAERS Safety Report 8159008-5 (Version None)
Quarter: 2012Q1

REPORT INFORMATION
  Report Type: 
  Country: None (occurrence: None)
  Receive Date: 20120223
  Receipt Date: 20120214
  Transmission Date: 20120608
  Serious: No
  Sender: FDA-Public Use
  Company Number: US-B.I. PHARMACEUTICALS,INC./RIDGEFIELD-2012-BP-02871BP

PATIENT
  Sex: Male

DRUGS (2)
  1. ZANTAC 150 [Suspect]
     Indication: PROPHYLAXIS
     Dosage: 300 MG
     Route: 048
     Dates: start: 20120213
  2. ATENOLOL [Concomitant]
     Indication: HYPERTENSION
     Dosage: 50 MG
     Route: 048
     Dates: start: 20080101, end: 20120214

REACTIONS (2)
  - DIZZINESS [None]
  - BLOOD PRESSURE DECREASED [None]
